FAERS Safety Report 17372433 (Version 1)
Quarter: 2020Q1

REPORT INFORMATION
  Report Type: Spontaneous
  Country: FR (occurrence: FR)
  Receive Date: 20200205
  Receipt Date: 20200205
  Transmission Date: 20200409
  Serious: Yes (Hospitalization)
  Sender: FDA-Public Use
  Company Number: FR-MYLANLABS-2020M1012993

PATIENT
  Age: 64 Year
  Sex: Male
  Weight: 81 kg

DRUGS (7)
  1. ACICLOVIR [Suspect]
     Active Substance: ACYCLOVIR
     Dosage: 3X1G DILUTED IN 300ML OF SODIUM CHLORIDE (3.33 MG/ML)
     Route: 065
  2. AMOXICILLIN. [Concomitant]
     Active Substance: AMOXICILLIN
     Indication: ENCEPHALITIS
     Dosage: 12 GRAM, QD
     Route: 065
  3. METFORMIN [Concomitant]
     Active Substance: METFORMIN HYDROCHLORIDE
     Indication: TYPE 2 DIABETES MELLITUS
     Route: 065
  4. ACICLOVIR [Suspect]
     Active Substance: ACYCLOVIR
     Dosage: 750 MILLIGRAM, Q8H
     Route: 065
  5. ACICLOVIR [Suspect]
     Active Substance: ACYCLOVIR
     Indication: HERPES ZOSTER MENINGOENCEPHALITIS
     Dosage: 500 MILLIGRAM, Q8H
     Route: 065
     Dates: start: 2018
  6. ACICLOVIR [Suspect]
     Active Substance: ACYCLOVIR
     Dosage: 3 X 1.2G
     Route: 065
  7. SALINE                             /00075401/ [Concomitant]
     Active Substance: SODIUM CHLORIDE
     Indication: PRODUCT USED FOR UNKNOWN INDICATION
     Dosage: 3X1G OF ACICLOVIR DILUTED IN 300ML OF SODIUM CHLORIDE (3.33 MG/ML)
     Route: 065

REACTIONS (5)
  - Confusional state [Recovering/Resolving]
  - Aphasia [Recovering/Resolving]
  - Speech disorder [Recovering/Resolving]
  - Acute kidney injury [Recovering/Resolving]
  - Gait disturbance [Recovering/Resolving]

NARRATIVE: CASE EVENT DATE: 20180406
